FAERS Safety Report 8237870-5 (Version None)
Quarter: 2012Q1

REPORT INFORMATION
  Report Type: 
  Country: None (occurrence: None)
  Receive Date: 20120323
  Receipt Date: 20120313
  Transmission Date: 20120608
  Serious: Yes (Other)
  Sender: FDA-Public Use
  Company Number: 2012SP013888

PATIENT
  Sex: Female

DRUGS (1)
  1. NASONEX [Suspect]
     Indication: RHINITIS
     Dosage: 2 DF, BID, NAS
     Route: 045
     Dates: start: 20110101

REACTIONS (1)
  - CEREBROVASCULAR ACCIDENT [None]
